FAERS Safety Report 15818123 (Version 2)
Quarter: 2019Q1

REPORT INFORMATION
  Report Type: Spontaneous
  Country: US (occurrence: US)
  Receive Date: 20190113
  Receipt Date: 20190322
  Transmission Date: 20190417
  Serious: Yes (Other)
  Sender: FDA-Public Use
  Company Number: US-COOPERSURGICAL, INC.-US-2018CPS019082

PATIENT
  Age: 24 Year
  Sex: Female
  Weight: 77.18 kg

DRUGS (2)
  1. LEXAPRO [Concomitant]
     Active Substance: ESCITALOPRAM OXALATE
     Indication: ANXIETY
  2. PARAGARD T 380A [Suspect]
     Active Substance: COPPER
     Indication: CONTRACEPTION
     Dates: start: 201708

REACTIONS (6)
  - Obsessive-compulsive disorder [Unknown]
  - Menorrhagia [Unknown]
  - Device dislocation [Recovered/Resolved]
  - Menstruation delayed [Recovered/Resolved]
  - Attention deficit/hyperactivity disorder [Unknown]
  - Muscle spasms [Recovered/Resolved]

NARRATIVE: CASE EVENT DATE: 201709
